FAERS Safety Report 4349368-5 (Version None)
Quarter: 2004Q2

REPORT INFORMATION
  Report Type: 
  Country: None (occurrence: None)
  Receive Date: 20040426
  Receipt Date: 20040413
  Transmission Date: 20050107
  Serious: Yes (Death, Hospitalization)
  Sender: FDA-Public Use
  Company Number: US072165

PATIENT
  Age: 62 Year
  Sex: Female

DRUGS (6)
  1. ENBREL [Suspect]
     Indication: RHEUMATOID ARTHRITIS
     Dosage: 25 MG, 2 IN 1 WEEKS, SC
     Route: 058
     Dates: start: 20001208
  2. AMITRIPTYLINE HCL [Concomitant]
  3. OMEPRAZOLE [Concomitant]
  4. DIAZEPAM [Concomitant]
  5. CELECOXIB [Concomitant]
  6. TRAMADOL HCL [Concomitant]

REACTIONS (1)
  - CARDIAC FAILURE CONGESTIVE [None]
